FAERS Safety Report 7655555-0 (Version None)
Quarter: 2011Q3

REPORT INFORMATION
  Report Type: 
  Country: None (occurrence: None)
  Receive Date: 20110804
  Receipt Date: 20110727
  Transmission Date: 20111222
  Serious: Yes (Hospitalization, Disabling, Other)
  Sender: FDA-Public Use
  Company Number: JP-SANOFI-AVENTIS-2011SA038599

PATIENT
  Age: 87 Year
  Sex: Male
  Weight: 45 kg

DRUGS (21)
  1. METOPROLOL TARTRATE [Concomitant]
     Indication: HYPERTENSION
     Dates: end: 20110613
  2. ISALON [Concomitant]
     Dates: end: 20110609
  3. EVIPROSTAT [Concomitant]
  4. LOPRESSOR [Concomitant]
     Indication: HYPERTENSION
     Dates: start: 20110614
  5. SEISHOKU [Concomitant]
     Dates: start: 20110603, end: 20110609
  6. FAMOTIDINE [Concomitant]
     Dates: end: 20110613
  7. VOLTAREN [Concomitant]
     Route: 054
  8. BROTIZOLAM [Concomitant]
     Route: 065
     Dates: start: 20110614
  9. WARFARIN SODIUM [Concomitant]
     Indication: CEREBRAL INFARCTION
  10. TAMSULOSIN HCL [Concomitant]
     Indication: HYPERTENSION
     Route: 065
     Dates: start: 20110614
  11. DIAZEPAM [Concomitant]
     Dates: start: 20110605, end: 20110611
  12. NEUROTROPIN [Concomitant]
     Dates: start: 20110603, end: 20110609
  13. ZOLPIDEM [Suspect]
     Route: 048
     Dates: end: 20110613
  14. METOPROLOL TARTRATE [Concomitant]
     Indication: ARRHYTHMIA
     Dates: end: 20110613
  15. EVIPROSTAT [Concomitant]
     Indication: HYPERTENSION
  16. TAMSULOSIN HYDROCHLORIDE [Concomitant]
     Indication: HYPERTENSION
     Dates: end: 20110613
  17. ALOSENN [Concomitant]
  18. CELECOXIB [Concomitant]
     Dates: end: 20110609
  19. LOPRESSOR [Concomitant]
     Indication: ARRHYTHMIA
     Dates: start: 20110614
  20. FAMOTIDINE [Suspect]
     Dosage: START DATE: 14-JUN-2011.
     Route: 048
  21. RHYTHMY [Concomitant]
     Dates: start: 20110608, end: 20110613

REACTIONS (5)
  - SOMNAMBULISM [None]
  - LUMBAR VERTEBRAL FRACTURE [None]
  - DELIRIUM [None]
  - DELUSION [None]
  - AMNESIA [None]
